FAERS Safety Report 6597682-5 (Version None)
Quarter: 2010Q1

REPORT INFORMATION
  Report Type: 
  Country: None (occurrence: None)
  Receive Date: 20100216
  Receipt Date: 20100203
  Transmission Date: 20100710
  Serious: Yes (Death)
  Sender: FDA-Public Use
  Company Number: 230081J10CAN

PATIENT
  Sex: Male

DRUGS (2)
  1. REBIF [Suspect]
     Indication: RELAPSING-REMITTING MULTIPLE SCLEROSIS
     Dosage: 44 MCG, 3 IN 1 WEEKS
     Dates: start: 20090521
  2. TAMACET [TRAMACET] (PARACETAMOL W/TRAMADOL) [Concomitant]

REACTIONS (2)
  - CERVICAL VERTEBRAL FRACTURE [None]
  - FALL [None]
